FAERS Safety Report 17192036 (Version 1)
Quarter: 2019Q4

REPORT INFORMATION
  Report Type: Spontaneous
  Country: US (occurrence: US)
  Receive Date: 20191223
  Receipt Date: 20191223
  Transmission Date: 20200122
  Serious: No
  Sender: FDA-Public Use
  Company Number: US-TRIS PHARMA, INC.-19US008694

PATIENT

DRUGS (6)
  1. OFEV [Concomitant]
     Active Substance: NINTEDANIB
     Dosage: 150 MILLIGRAM, BID
     Route: 048
  2. HYDROCODONE + APAP [Suspect]
     Active Substance: ACETAMINOPHEN\HYDROCODONE BITARTRATE
     Indication: TOOTH EXTRACTION
     Route: 048
  3. OFEV [Concomitant]
     Active Substance: NINTEDANIB
     Dosage: 150 MILLIGRAM, BID
     Route: 048
     Dates: start: 20180112
  4. AMPICILLIN [Concomitant]
     Active Substance: AMPICILLIN
     Indication: TOOTH EXTRACTION
     Route: 065
  5. OFEV [Concomitant]
     Active Substance: NINTEDANIB
     Indication: IDIOPATHIC PULMONARY FIBROSIS
     Dosage: 150 MILLIGRAM, BID
     Route: 048
  6. LOVASTATIN. [Concomitant]
     Active Substance: LOVASTATIN
     Indication: BLOOD PRESSURE ABNORMAL
     Route: 065

REACTIONS (5)
  - Hyperhidrosis [Recovering/Resolving]
  - Heart rate decreased [Recovering/Resolving]
  - Dizziness [Recovering/Resolving]
  - Dehydration [Recovering/Resolving]
  - Blood pressure decreased [Recovering/Resolving]
